FAERS Safety Report 7813035-3 (Version None)
Quarter: 2011Q4

REPORT INFORMATION
  Report Type: 
  Country: None (occurrence: None)
  Receive Date: 20111013
  Receipt Date: 20110930
  Transmission Date: 20120403
  Serious: Yes (Other)
  Sender: FDA-Public Use
  Company Number: AU-BAYER-2011-092614

PATIENT
  Sex: Female

DRUGS (1)
  1. CANESTEN CLOTRIMAZOLE THRUSH TREATMENT [Suspect]
     Indication: VULVOVAGINAL CANDIDIASIS
     Dosage: UNK
     Dates: start: 20110921, end: 20110923

REACTIONS (1)
  - VAGINAL HAEMORRHAGE [None]
